FAERS Safety Report 4421655-1 (Version None)
Quarter: 2004Q3

REPORT INFORMATION
  Report Type: 
  Country: None (occurrence: None)
  Receive Date: 20040728
  Receipt Date: 20040719
  Transmission Date: 20050211
  Serious: Yes (Hospitalization, Disabling)
  Sender: FDA-Public Use
  Company Number: 2004-02375

PATIENT
  Age: 39 Year
  Sex: Male

DRUGS (1)
  1. IMMUCYST (BCG - IT (CONNAUGHT)), AVENTIS PASTEUR LTD. [Suspect]
     Indication: BLADDER CANCER
     Dosage: 81.0 MG (81.0 MG, 2 WK) I.VES., BLADDER
     Route: 043
     Dates: start: 20040416, end: 20040604

REACTIONS (4)
  - ARTHRITIS [None]
  - EYE REDNESS [None]
  - KERATOCONJUNCTIVITIS SICCA [None]
  - NASOPHARYNGITIS [None]
